FAERS Safety Report 5607235-0 (Version None)
Quarter: 2008Q1

REPORT INFORMATION
  Report Type: 
  Country: None (occurrence: None)
  Receive Date: 20080111
  Receipt Date: 20070220
  Transmission Date: 20080703
  Serious: Yes (Hospitalization, Other)
  Sender: FDA-Public Use
  Company Number: HQWYE177220FEB04

PATIENT
  Age: 58 Year
  Sex: Female
  Weight: 60.84 kg

DRUGS (4)
  1. PREMPRO [Suspect]
     Indication: HORMONE REPLACEMENT THERAPY
     Dosage: ORAL
     Route: 048
     Dates: start: 19960101, end: 20020603
  2. ESTRADERM [Suspect]
     Indication: HORMONE REPLACEMENT THERAPY
     Dosage: TRANSDERMAL
     Route: 062
     Dates: start: 19900713, end: 19960101
  3. PREMARIN [Suspect]
  4. PROVERA [Suspect]

REACTIONS (1)
  - DEEP VEIN THROMBOSIS [None]
